FAERS Safety Report 23102875 (Version 1)
Quarter: 2023Q4

REPORT INFORMATION
  Report Type: Spontaneous
  Country: FR (occurrence: FR)
  Receive Date: 20231025
  Receipt Date: 20231025
  Transmission Date: 20240110
  Serious: Yes (Death, Other)
  Sender: FDA-Public Use
  Company Number: None

PATIENT
  Age: 62 Year
  Sex: Male
  Weight: 54 kg

DRUGS (7)
  1. FLUOROURACIL [Suspect]
     Active Substance: FLUOROURACIL
     Indication: Squamous cell carcinoma
     Dosage: 4550 MG
     Route: 041
     Dates: start: 20200302, end: 202003
  2. FLUOROURACIL [Suspect]
     Active Substance: FLUOROURACIL
     Dosage: 3575 MG
     Route: 041
     Dates: start: 202003, end: 20200325
  3. CISPLATIN [Suspect]
     Active Substance: CISPLATIN
     Indication: Squamous cell carcinoma
     Dosage: 91 MG
     Route: 041
     Dates: start: 20200302, end: 202003
  4. CISPLATIN [Suspect]
     Active Substance: CISPLATIN
     Dosage: 89.5 MG
     Route: 041
     Dates: start: 202003, end: 20200325
  5. DOCETAXEL [Suspect]
     Active Substance: DOCETAXEL
     Indication: Squamous cell carcinoma
     Dosage: 92 MG
     Route: 041
     Dates: start: 20200302, end: 202003
  6. DOCETAXEL [Suspect]
     Active Substance: DOCETAXEL
     Dosage: 78 UNK
     Route: 041
     Dates: start: 202003, end: 20200325
  7. METHYLPREDNISOLONE [Suspect]
     Active Substance: METHYLPREDNISOLONE
     Indication: Squamous cell carcinoma
     Route: 041
     Dates: start: 20200302, end: 20200325

REACTIONS (1)
  - COVID-19 pneumonia [Fatal]

NARRATIVE: CASE EVENT DATE: 20200330
